FAERS Safety Report 5248398-9 (Version None)
Quarter: 2007Q1

REPORT INFORMATION
  Report Type: 
  Country: None (occurrence: None)
  Receive Date: 20070222
  Receipt Date: 20070208
  Transmission Date: 20070707
  Serious: Yes (Disabling)
  Sender: FDA-Public Use
  Company Number: 2007S1000094

PATIENT
  Sex: 0

DRUGS (1)
  1. CUBICIN [Suspect]
     Indication: ARTHRITIS INFECTIVE

REACTIONS (2)
  - AMPUTATION [None]
  - TREATMENT NONCOMPLIANCE [None]
